FAERS Safety Report 5062882-2 (Version None)
Quarter: 2006Q3

REPORT INFORMATION
  Report Type: 
  Country: None (occurrence: None)
  Receive Date: 20060724
  Receipt Date: 20060718
  Transmission Date: 20061208
  Serious: Yes (Life-Threatening, Hospitalization, Disabling, Other)
  Sender: FDA-Public Use
  Company Number: 200514411GDS

PATIENT
  Age: 49 Year
  Sex: Male
  Weight: 92 kg

DRUGS (20)
  1. VARDENAFIL ONCE DAILY OR VARDENAFIL PRN OR PLACEBO (UNCODEABLE ^UNCLAS [Suspect]
     Indication: ERECTILE DYSFUNCTION
     Dosage: 10 MG, TOTAL DAILY, ORAL
     Route: 048
     Dates: start: 20051110
  2. CIPRO [Suspect]
     Indication: URINARY TRACT INFECTION
     Dosage: 500 MG, TOTAL DAILY
     Dates: start: 20051121
  3. ADVIL [Concomitant]
  4. ACETAMINOPHEN W/ CODEINE [Concomitant]
  5. HEPARIN [Concomitant]
  6. RANITIDINE [Concomitant]
  7. PERCOCET [Concomitant]
  8. LABETALOL HCL [Concomitant]
  9. METOPROLOL [Concomitant]
  10. HYDRALAZINE HCL [Concomitant]
  11. ZANTAC [Concomitant]
  12. ANCEF [Concomitant]
  13. ATIVAN [Concomitant]
  14. NORVASC [Concomitant]
  15. SERAX [Concomitant]
  16. STEMATIL [Concomitant]
  17. RESTORIL [Concomitant]
  18. GRAVOL TAB [Concomitant]
  19. FENTANYL [Concomitant]
  20. CIPRO [Concomitant]

REACTIONS (7)
  - HAEMODIALYSIS [None]
  - HYPERTENSION [None]
  - OESOPHAGITIS [None]
  - PAIN [None]
  - RENAL FAILURE ACUTE [None]
  - URINARY TRACT INFECTION [None]
  - VOMITING [None]
